FAERS Safety Report 21149560 (Version 2)
Quarter: 2022Q3

REPORT INFORMATION
  Report Type: Report from Study
  Country: DE (occurrence: DE)
  Receive Date: 20220729
  Receipt Date: 20220803
  Transmission Date: 20221027
  Serious: Yes (Other)
  Sender: FDA-Public Use
  Company Number: DE-GLAXOSMITHKLINE-DE2021255357

PATIENT

DRUGS (16)
  1. DOSTARLIMAB [Suspect]
     Active Substance: DOSTARLIMAB
     Indication: Non-small cell lung cancer
     Dosage: DOSE AT CYCLE 1 - DAY 1
     Route: 042
     Dates: start: 20210622, end: 20210622
  2. DOSTARLIMAB [Suspect]
     Active Substance: DOSTARLIMAB
     Dosage: DOSE AT DAY 1
     Route: 042
     Dates: start: 20210713, end: 20210713
  3. DOSTARLIMAB [Suspect]
     Active Substance: DOSTARLIMAB
     Dosage: DOSE AT DAY 1
     Route: 042
     Dates: start: 20210803, end: 20210803
  4. DOSTARLIMAB [Suspect]
     Active Substance: DOSTARLIMAB
     Dosage: DOSE AT DAY 1
     Route: 042
     Dates: start: 20210827, end: 20210827
  5. DOSTARLIMAB [Suspect]
     Active Substance: DOSTARLIMAB
     Dosage: DOSE AT DAY 1
     Route: 042
     Dates: start: 20210920, end: 20210920
  6. DOSTARLIMAB [Suspect]
     Active Substance: DOSTARLIMAB
     Dosage: DOSE AT DAY 1
     Route: 042
     Dates: start: 20211011, end: 20211011
  7. DOSTARLIMAB [Suspect]
     Active Substance: DOSTARLIMAB
     Dosage: DOSE AT DAY 1
     Route: 042
     Dates: start: 20211101, end: 20211101
  8. DOSTARLIMAB [Suspect]
     Active Substance: DOSTARLIMAB
     Dosage: DOSE AT DAY 1
     Route: 042
     Dates: start: 20211122, end: 20211122
  9. PEMETREXED [Suspect]
     Active Substance: PEMETREXED
     Indication: Non-small cell lung cancer
     Dosage: DOSE AT CYCLE 1 - DAY 1
     Route: 042
     Dates: start: 20210622, end: 20210622
  10. PEMETREXED [Suspect]
     Active Substance: PEMETREXED
     Dosage: DOSE AT DAY 1
     Route: 042
     Dates: start: 20210713, end: 20210713
  11. PEMETREXED [Suspect]
     Active Substance: PEMETREXED
     Dosage: DOSE AT DAY 1
     Route: 042
     Dates: start: 20210803, end: 20210803
  12. PEMETREXED [Suspect]
     Active Substance: PEMETREXED
     Dosage: DOSE AT DAY 1
     Route: 042
     Dates: start: 20210827, end: 20210827
  13. CARBOPLATIN [Suspect]
     Active Substance: CARBOPLATIN
     Indication: Non-small cell lung cancer
     Dosage: DOSE AT CYCLE 1 - DAY 1
     Route: 042
     Dates: start: 20210622, end: 20210622
  14. CARBOPLATIN [Suspect]
     Active Substance: CARBOPLATIN
     Dosage: DOSE AT DAY 1
     Route: 042
     Dates: start: 20210713, end: 20210713
  15. CARBOPLATIN [Suspect]
     Active Substance: CARBOPLATIN
     Dosage: DOSE AT DAY 1
     Route: 042
     Dates: start: 20210803, end: 20210803
  16. CARBOPLATIN [Suspect]
     Active Substance: CARBOPLATIN
     Dosage: DOSE AT DAY 1
     Route: 042
     Dates: start: 20210827, end: 20210827

REACTIONS (7)
  - Hepatitis [Recovered/Resolved]
  - Alanine aminotransferase increased [Recovered/Resolved with Sequelae]
  - Aspartate aminotransferase increased [Recovered/Resolved with Sequelae]
  - Gamma-glutamyltransferase increased [Recovered/Resolved]
  - Alanine aminotransferase increased [Recovered/Resolved]
  - Aspartate aminotransferase increased [Recovered/Resolved]
  - Blood alkaline phosphatase increased [Not Recovered/Not Resolved]

NARRATIVE: CASE EVENT DATE: 20211122
